FAERS Safety Report 8136792-8 (Version None)
Quarter: 2012Q1

REPORT INFORMATION
  Report Type: 
  Country: None (occurrence: None)
  Receive Date: 20120214
  Receipt Date: 20120130
  Transmission Date: 20120608
  Serious: Yes (Hospitalization)
  Sender: FDA-Public Use
  Company Number: GB-ARROW GEN-2012-02279

PATIENT
  Age: 60 Year
  Sex: Male

DRUGS (1)
  1. MELOXICAM [Suspect]
     Indication: ARTHRITIS
     Dosage: UNK

REACTIONS (3)
  - MAJOR DEPRESSION [None]
  - BLOOD PRESSURE INCREASED [None]
  - RASH ERYTHEMATOUS [None]
